FAERS Safety Report 9820137 (Version 1)
Quarter: 2013Q4

REPORT INFORMATION
  Report Type: Spontaneous
  Country: US (occurrence: None)
  Receive Date: 20131223
  Receipt Date: 20131223
  Transmission Date: 20140711
  Serious: Yes (Other)
  Sender: FDA-Public Use
  Company Number: 221295

PATIENT
  Age: 56 Year
  Sex: Male

DRUGS (2)
  1. PICATO [Suspect]
     Route: 061
     Dates: start: 20130415, end: 20130417
  2. BENICAR (OLMESARTAN MEDOXIMIL) (40MG) [Concomitant]

REACTIONS (4)
  - Application site swelling [None]
  - Application site vesicles [None]
  - Application site exfoliation [None]
  - Application site erythema [None]
